FAERS Safety Report 15320963 (Version 3)
Quarter: 2018Q3

REPORT INFORMATION
  Report Type: Report from Study
  Country: AU (occurrence: AU)
  Receive Date: 20180827
  Receipt Date: 20180917
  Transmission Date: 20181010
  Serious: Yes (Other)
  Sender: FDA-Public Use
  Company Number: AU-ROCHE-2165064

PATIENT
  Age: 70 Year
  Sex: Male

DRUGS (2)
  1. ACTEMRA [Suspect]
     Active Substance: TOCILIZUMAB
     Route: 042
     Dates: start: 20170922
  2. ACTEMRA [Suspect]
     Active Substance: TOCILIZUMAB
     Indication: RHEUMATOID ARTHRITIS
     Route: 042
     Dates: start: 20141205

REACTIONS (4)
  - Wound dehiscence [Recovered/Resolved]
  - Squamous cell carcinoma [Recovering/Resolving]
  - Wound infection [Unknown]
  - Impaired healing [Unknown]

NARRATIVE: CASE EVENT DATE: 20180819
